FAERS Safety Report 9065949 (Version 1)
Quarter: 2013Q1

REPORT INFORMATION
  Report Type: Spontaneous
  Country: CA (occurrence: CA)
  Receive Date: 20130214
  Receipt Date: 20130214
  Transmission Date: 20140127
  Serious: Yes (Hospitalization)
  Sender: FDA-Public Use
  Company Number: CA-B.I. PHARMACEUTICALS,INC./RIDGEFIELD-2013-CN-00230CN

PATIENT
  Age: 84 Year
  Sex: Male
  Weight: 102 kg

DRUGS (7)
  1. PRADAX [Suspect]
     Dosage: 220 MG
     Route: 048
  2. ASA [Concomitant]
  3. CITALOPRAM [Concomitant]
  4. COREG [Concomitant]
  5. DIGOXIN [Concomitant]
  6. HALOPERIDOL [Concomitant]
  7. OLANZAPINE [Concomitant]

REACTIONS (4)
  - Asthenia [Recovered/Resolved]
  - Gastrointestinal haemorrhage [Recovered/Resolved]
  - Haematochezia [Recovered/Resolved]
  - Pallor [Recovered/Resolved]
